FAERS Safety Report 5405132-7 (Version None)
Quarter: 2007Q3

REPORT INFORMATION
  Report Type: 
  Country: None (occurrence: None)
  Receive Date: 20070803
  Receipt Date: 20070723
  Transmission Date: 20080115
  Serious: Yes (Death)
  Sender: FDA-Public Use
  Company Number: JP-MERCK-0707USA04407

PATIENT

DRUGS (3)
  1. PRIMAXIN [Suspect]
     Route: 041
  2. PEPCID [Suspect]
     Route: 042
  3. LASIX [Suspect]
     Route: 042

REACTIONS (2)
  - DEATH [None]
  - MEDICATION ERROR [None]
